FAERS Safety Report 7668908-1 (Version None)
Quarter: 2011Q3

REPORT INFORMATION
  Report Type: 
  Country: None (occurrence: None)
  Receive Date: 20110808
  Receipt Date: 20110802
  Transmission Date: 20111222
  Serious: Yes (Disabling)
  Sender: FDA-Public Use
  Company Number: GB-PERRIGO-11GB006200

PATIENT
  Age: 83 Year
  Sex: Female
  Weight: 47 kg

DRUGS (13)
  1. SYMBICORT [Concomitant]
     Indication: PRODUCT USED FOR UNKNOWN INDICATION
     Dosage: UNK
     Route: 065
     Dates: start: 20110621, end: 20110622
  2. LOPERAMIDE [Suspect]
     Indication: PRODUCT USED FOR UNKNOWN INDICATION
     Dosage: UNK
     Route: 048
     Dates: start: 20110725
  3. AQUEOUS CREAM [Concomitant]
     Indication: PRODUCT USED FOR UNKNOWN INDICATION
     Dosage: UNK
     Route: 061
     Dates: start: 20110509, end: 20110606
  4. ERYTHROMYCIN [Concomitant]
     Indication: PRODUCT USED FOR UNKNOWN INDICATION
     Dosage: UNK
     Route: 065
     Dates: start: 20110608, end: 20110615
  5. FORMOTEROL FUMARATE [Concomitant]
     Indication: PRODUCT USED FOR UNKNOWN INDICATION
     Dosage: UNK
     Route: 065
     Dates: start: 20100205
  6. SYMBICORT [Concomitant]
     Dosage: UNK
     Route: 065
     Dates: start: 20110523, end: 20110524
  7. ALBUTEROL [Concomitant]
     Indication: PRODUCT USED FOR UNKNOWN INDICATION
     Dosage: UNK
     Route: 065
     Dates: start: 20100204
  8. CETIRIZINE HCL [Concomitant]
     Dosage: UNK
     Route: 065
     Dates: start: 20110503, end: 20110517
  9. SYMBICORT [Concomitant]
     Dosage: UNK
     Route: 065
     Dates: start: 20110722, end: 20110723
  10. CETIRIZINE HCL [Concomitant]
     Indication: PRODUCT USED FOR UNKNOWN INDICATION
     Dosage: UNK
     Route: 065
     Dates: start: 20110509, end: 20110606
  11. HYDROXYZINE HCL [Concomitant]
     Indication: PRODUCT USED FOR UNKNOWN INDICATION
     Dosage: UNK
     Route: 065
     Dates: start: 20110616, end: 20110714
  12. CETIRIZINE HCL [Concomitant]
     Dosage: UNK
     Route: 065
     Dates: start: 20110621, end: 20110721
  13. FERROUS SULFATE TAB [Concomitant]
     Indication: PRODUCT USED FOR UNKNOWN INDICATION
     Dosage: UNK
     Route: 065
     Dates: start: 20110616

REACTIONS (2)
  - URINARY RETENTION [None]
  - ORAL PAIN [None]
